FAERS Safety Report 8265180 (Version 4)
Quarter: 2012Q4

REPORT INFORMATION
  Report Type: 
  Country: CZ (occurrence: CZ)
  Receive Date: 20111128
  Receipt Date: 20121128
  Transmission Date: 20130627
  Serious: Yes (Death, Life-Threatening, Hospitalization)
  Sender: FDA-Public Use
  Company Number: PHHO2010CZ19869

PATIENT
  Age: 60 Year
  Sex: Male
  Weight: 83 kg

DRUGS (9)
  1. EVEROLIMUS [Suspect]
     Indication: LIVER TRANSPLANT
     Dosage: 1 mg, BID
     Route: 048
     Dates: start: 20100119
  2. EVEROLIMUS [Suspect]
     Dosage: 1 mg, BID
     Route: 048
     Dates: start: 20100226
  3. EVEROLIMUS [Suspect]
     Dosage: 0.5 mg, BID
     Route: 048
     Dates: start: 20110413
  4. EVEROLIMUS [Suspect]
     Dosage: 0.5 mg, BID
     Route: 048
     Dates: start: 20110712
  5. EVEROLIMUS [Suspect]
     Dosage: 0.5 mg, QD
     Route: 048
     Dates: start: 20111101, end: 20111107
  6. TACROLIMUS [Suspect]
     Indication: LIVER TRANSPLANT
     Dosage: 1 mg, BID
     Route: 048
     Dates: start: 20091222
  7. TACROLIMUS [Suspect]
     Dosage: 0.5 mg, BID
     Route: 048
     Dates: start: 20110104
  8. TACROLIMUS [Suspect]
     Dosage: 0.5 mg, QD
     Route: 048
     Dates: start: 20111101, end: 20111107
  9. PREDNISONE [Concomitant]
     Indication: LIVER TRANSPLANT
     Dosage: 10 mg, QD
     Route: 048
     Dates: start: 20100215

REACTIONS (11)
  - Renal failure [Recovered/Resolved]
  - Hepatic lesion [Not Recovered/Not Resolved]
  - Disease progression [Recovered/Resolved]
  - Septic shock [Fatal]
  - Respiratory failure [Not Recovered/Not Resolved]
  - Complications of transplanted liver [Unknown]
  - Lower respiratory tract infection [Recovered/Resolved]
  - Pyrexia [Recovered/Resolved]
  - Osteomyelitis [Recovered/Resolved]
  - Pneumonia staphylococcal [Not Recovered/Not Resolved]
  - Pneumocystis jiroveci pneumonia [Not Recovered/Not Resolved]
